FAERS Safety Report 21301239 (Version 1)
Quarter: 2022Q3

REPORT INFORMATION
  Report Type: Spontaneous
  Country: US (occurrence: None)
  Receive Date: 20220907
  Receipt Date: 20220907
  Transmission Date: 20221027
  Serious: Yes (Other)
  Sender: FDA-Public Use
  Company Number: US-ROCHE-3171416

PATIENT
  Sex: Female

DRUGS (8)
  1. CELLCEPT [Suspect]
     Active Substance: MYCOPHENOLATE MOFETIL
     Indication: Lupus nephritis
     Route: 048
  2. LUPKYNIS [Suspect]
     Active Substance: VOCLOSPORIN
     Indication: Product used for unknown indication
     Route: 048
     Dates: start: 20210913, end: 20211227
  3. MELATONIN [Concomitant]
     Active Substance: MELATONIN
  4. FUROSEMIDE [Concomitant]
     Active Substance: FUROSEMIDE
  5. BIOTIN [Concomitant]
     Active Substance: BIOTIN
  6. ESCITALOPRAM [Concomitant]
     Active Substance: ESCITALOPRAM OXALATE
  7. PLAQUENIL [Concomitant]
     Active Substance: HYDROXYCHLOROQUINE SULFATE
  8. PREDNISONE [Concomitant]
     Active Substance: PREDNISONE

REACTIONS (6)
  - Ear infection [Unknown]
  - Nephrotic syndrome [Unknown]
  - Lymphadenopathy [Unknown]
  - Arthralgia [Unknown]
  - Orthostatic hypotension [Unknown]
  - Alopecia [Unknown]
